FAERS Safety Report 8854362 (Version 1)
Quarter: 2012Q4

REPORT INFORMATION
  Report Type: Report from Study
  Country: FR (occurrence: FR)
  Receive Date: 20121023
  Receipt Date: 20121023
  Transmission Date: 20130627
  Serious: Yes (Hospitalization)
  Sender: FDA-Public Use
  Company Number: FR-ROCHE-1143864

PATIENT
  Sex: Female

DRUGS (3)
  1. BEVACIZUMAB [Suspect]
     Indication: COLORECTAL CANCER
     Dosage: cycle 4, last dose was administered on date 20/Apr/2011.325
     Route: 065
     Dates: start: 20110420
  2. IRINOTECAN [Suspect]
     Indication: COLORECTAL CANCER
     Route: 065
     Dates: start: 20110420
  3. FLUOROURACIL [Suspect]
     Indication: COLORECTAL CANCER
     Dosage: contius dosing
     Route: 065
     Dates: start: 20110420

REACTIONS (3)
  - Thrombosis in device [Recovered/Resolved]
  - Face oedema [Recovered/Resolved]
  - Localised oedema [Recovered/Resolved]
